FAERS Safety Report 4422197-X (Version None)
Quarter: 2004Q3

REPORT INFORMATION
  Report Type: 
  Country: None (occurrence: None)
  Receive Date: 20040810
  Receipt Date: 20040729
  Transmission Date: 20050211
  Serious: Yes (Death)
  Sender: FDA-Public Use
  Company Number: US-JNJFOC-20040708270

PATIENT
  Age: 65 Year
  Sex: Female

DRUGS (1)
  1. DURAGESIC [Suspect]
     Indication: DRUG USE FOR UNKNOWN INDICATION
     Route: 062

REACTIONS (4)
  - ACCIDENTAL OVERDOSE [None]
  - CONVERSION DISORDER [None]
  - PHARMACEUTICAL PRODUCT COMPLAINT [None]
  - RESPIRATORY FAILURE [None]
